FAERS Safety Report 14082435 (Version 1)
Quarter: 2017Q4

REPORT INFORMATION
  Report Type: Spontaneous
  Country: US (occurrence: US)
  Receive Date: 20171012
  Receipt Date: 20171012
  Transmission Date: 20180321
  Serious: No
  Sender: FDA-Public Use
  Company Number: US-MYLANLABS-2017M1052894

PATIENT
  Age: 35 Year
  Sex: Male
  Weight: 83.9 kg

DRUGS (2)
  1. MODAFINIL TABLETS, USP [Suspect]
     Active Substance: MODAFINIL
     Indication: ATTENTION DEFICIT/HYPERACTIVITY DISORDER
     Dosage: 200 MG, UNK
     Route: 048
     Dates: start: 2017
  2. MODAFINIL TABLETS, USP [Suspect]
     Active Substance: MODAFINIL
     Indication: AUTISM SPECTRUM DISORDER

REACTIONS (1)
  - Drug effect decreased [Recovering/Resolving]

NARRATIVE: CASE EVENT DATE: 201707
